FAERS Safety Report 8496476-3 (Version None)
Quarter: 2012Q2

REPORT INFORMATION
  Report Type: 
  Country: None (occurrence: None)
  Receive Date: 20120629
  Receipt Date: 20120614
  Transmission Date: 20120825
  Serious: Yes (Hospitalization)
  Sender: FDA-Public Use
  Company Number: LTI2012A00138

PATIENT
  Age: 60 Year
  Sex: Female

DRUGS (7)
  1. LANSOPRAZOLE [Suspect]
     Indication: PRODUCT USED FOR UNKNOWN INDICATION
     Dosage: 30 MG (30 MG, 1 IN 1 D)
     Route: 048
  2. HUMIRA [Suspect]
     Indication: ANKYLOSING SPONDYLITIS
     Dosage: SUBCUTANEOUS
     Route: 058
     Dates: start: 20110109, end: 20120501
  3. METHOTREXATE SODIUM [Concomitant]
  4. ENBREL [Concomitant]
  5. ACETAMINOPHEN [Suspect]
     Indication: PRODUCT USED FOR UNKNOWN INDICATION
     Dosage: (AS REQUIRED)
  6. INDOMETHACIN [Suspect]
     Indication: ANKYLOSING SPONDYLITIS
     Dosage: 350 MG (75 MG, 1 IN 2 D)
     Route: 048
  7. REMICADE [Concomitant]

REACTIONS (2)
  - OSTEONECROSIS [None]
  - TREATMENT FAILURE [None]
